FAERS Safety Report 8188781-5 (Version None)
Quarter: 2012Q1

REPORT INFORMATION
  Report Type: 
  Country: None (occurrence: None)
  Receive Date: 20120306
  Receipt Date: 20120228
  Transmission Date: 20120608
  Serious: Yes (Hospitalization)
  Sender: FDA-Public Use
  Company Number: NL-B.I. PHARMACEUTICALS,INC./RIDGEFIELD-2012-NL-00058NL

PATIENT
  Sex: Female
  Weight: 55 kg

DRUGS (1)
  1. SIFROL 0.088MG [Suspect]
     Indication: RESTLESS LEGS SYNDROME
     Dates: start: 20101101

REACTIONS (1)
  - ARRHYTHMIA [None]
